FAERS Safety Report 9164495 (Version 1)
Quarter: 2013Q1

REPORT INFORMATION
  Report Type: Spontaneous
  Country: MX (occurrence: MX)
  Receive Date: 20130315
  Receipt Date: 20130315
  Transmission Date: 20140127
  Serious: Yes (Other)
  Sender: FDA-Public Use
  Company Number: PHHY2013MX025134

PATIENT
  Age: 69 Year
  Sex: Female

DRUGS (5)
  1. EXFORGE [Suspect]
     Indication: HYPERTENSION
     Dosage: 2 DF(160/5MG), DAILY
     Route: 048
  2. ZACTOS [Concomitant]
     Indication: DIABETES MELLITUS
     Dosage: 1 UKN, DAILY
     Dates: start: 2008
  3. ONGLYZA [Concomitant]
     Indication: DIABETES MELLITUS
     Dosage: 0.5 DF, DAILY
     Dates: start: 2008
  4. ASPIRIN PROTECT [Concomitant]
     Indication: INFARCTION
     Dosage: UNK UKN, UNK
     Dates: start: 2010
  5. LOPRESOR [Concomitant]
     Indication: BLOOD PRESSURE
     Dosage: 2 UKN, DAILY
     Dates: start: 2008

REACTIONS (4)
  - Blood glucose increased [Not Recovered/Not Resolved]
  - Breast cyst [Not Recovered/Not Resolved]
  - Lipoma [Not Recovered/Not Resolved]
  - Myalgia [Not Recovered/Not Resolved]
